FAERS Safety Report 25749680 (Version 1)
Quarter: 2025Q3

REPORT INFORMATION
  Report Type: Spontaneous
  Country: EU (occurrence: EU)
  Receive Date: 20250902
  Receipt Date: 20250902
  Transmission Date: 20251021
  Serious: Yes (Death)
  Sender: AMGEN
  Company Number: EU-AMGEN-SWESP2025171935

PATIENT

DRUGS (1)
  1. ETANERCEPT [Suspect]
     Active Substance: ETANERCEPT
     Indication: Rheumatoid arthritis
     Route: 065

REACTIONS (6)
  - Acute myocardial infarction [Fatal]
  - Death [Fatal]
  - Lymphoma [Fatal]
  - Cardiovascular disorder [Fatal]
  - Cerebrovascular disorder [Fatal]
  - Pain [Unknown]
